FAERS Safety Report 21938052 (Version 2)
Quarter: 2023Q1

REPORT INFORMATION
  Report Type: Report from Study
  Country: TH (occurrence: None)
  Receive Date: 20230201
  Receipt Date: 20230207
  Transmission Date: 20230418
  Serious: Yes (Hospitalization)
  Sender: FDA-Public Use
  Company Number: TH-Eisai Medical Research-EC-2023-132992

PATIENT
  Age: 66 Year
  Sex: Female

DRUGS (2)
  1. LENVIMA [Suspect]
     Active Substance: LENVATINIB
     Indication: Endometrial cancer
     Dosage: UNKNOWN DOSE (2 TABLETS AT BEDTIME)
     Route: 048
     Dates: start: 2022, end: 20230124
  2. KEYTRUDA [Suspect]
     Active Substance: PEMBROLIZUMAB
     Indication: Endometrial cancer
     Route: 042
     Dates: start: 20220907, end: 20221221

REACTIONS (3)
  - Drug hypersensitivity [Unknown]
  - Malignant neoplasm progression [Not Recovered/Not Resolved]
  - Allergic transfusion reaction [Unknown]

NARRATIVE: CASE EVENT DATE: 20230101
